FAERS Safety Report 5866309-X (Version None)
Quarter: 2008Q3

REPORT INFORMATION
  Report Type: 
  Country: None (occurrence: None)
  Receive Date: 20080901
  Receipt Date: 20080821
  Transmission Date: 20090109
  Serious: Yes (Hospitalization)
  Sender: FDA-Public Use
  Company Number: PHBS2008US05524

PATIENT
  Age: 80 Year
  Sex: Female

DRUGS (14)
  1. TOBRAMYCIN [Suspect]
     Indication: SEPTIC ARTHRITIS STAPHYLOCOCCAL
  2. VANCOMYCIN HYDROCHLORIDE [Concomitant]
     Dosage: UNK
     Route: 042
  3. FUROSEMIDE [Concomitant]
  4. LISINOPRIL [Concomitant]
  5. INSULIN [Concomitant]
  6. OMEPRAZOLE [Concomitant]
  7. SYNTHROID [Concomitant]
  8. METOPROLOL TARTRATE [Concomitant]
  9. MULTI-VITAMINS [Concomitant]
  10. CLOPIDOGREL [Concomitant]
  11. ATORVASTATIN [Concomitant]
  12. AMLODIPINE [Concomitant]
  13. WARFARIN SODIUM [Concomitant]
  14. MINOCYCLINE HCL [Concomitant]

REACTIONS (12)
  - AZOTAEMIA [None]
  - BLOOD CREATININE INCREASED [None]
  - DYSGEUSIA [None]
  - HAEMODIALYSIS [None]
  - MUSCLE SPASMS [None]
  - NAUSEA [None]
  - NEPHROPATHY TOXIC [None]
  - OEDEMA PERIPHERAL [None]
  - RENAL INJURY [None]
  - RENAL TUBULAR NECROSIS [None]
  - SURGERY [None]
  - VOMITING [None]
